FAERS Safety Report 9804143 (Version 1)
Quarter: 2014Q1

REPORT INFORMATION
  Report Type: Spontaneous
  Country: US (occurrence: None)
  Receive Date: 20140106
  Receipt Date: 20140106
  Transmission Date: 20141002
  Serious: Yes (Other)
  Sender: FDA-Public Use
  Company Number: ADR-2014-00004

PATIENT
  Age: 49 Year
  Sex: Female

DRUGS (2)
  1. BACLOFEN [Suspect]
     Indication: COMPLEX REGIONAL PAIN SYNDROME
     Dosage: DAY
  2. BUPIVACAINE (30 MG/ML) [Suspect]
     Dosage: DAY

REACTIONS (11)
  - Drug withdrawal syndrome [None]
  - Anxiety [None]
  - Insomnia [None]
  - Nausea [None]
  - Dizziness [None]
  - Balance disorder [None]
  - Asthenia [None]
  - Dizziness [None]
  - Hyperhidrosis [None]
  - Somnolence [None]
  - Toxicity to various agents [None]
